FAERS Safety Report 16248388 (Version 1)
Quarter: 2019Q2

REPORT INFORMATION
  Report Type: Spontaneous
  Country: DE (occurrence: DE)
  Receive Date: 20190429
  Receipt Date: 20190429
  Transmission Date: 20190711
  Serious: Yes (Other)
  Sender: FDA-Public Use
  Company Number: DE-TEVA-2019-DE-1042483

PATIENT
  Age: 54 Year
  Sex: Male
  Weight: 80 kg

DRUGS (1)
  1. CIPROFLOXACIN. [Suspect]
     Active Substance: CIPROFLOXACIN
     Dosage: NO LONGER KNOWN
     Route: 048
     Dates: start: 2012, end: 2012

REACTIONS (5)
  - Cerebrovascular accident [Not Recovered/Not Resolved]
  - Sensory loss [Not Recovered/Not Resolved]
  - Chronic fatigue syndrome [Not Recovered/Not Resolved]
  - Ligament pain [Not Recovered/Not Resolved]
  - Tendon pain [Not Recovered/Not Resolved]

NARRATIVE: CASE EVENT DATE: 2012
